FAERS Safety Report 4313199-2 (Version None)
Quarter: 2004Q1

REPORT INFORMATION
  Report Type: 
  Country: None (occurrence: None)
  Receive Date: 20040304
  Receipt Date: 20040218
  Transmission Date: 20041129
  Serious: Yes (Other)
  Sender: FDA-Public Use
  Company Number: 182387

PATIENT
  Age: 51 Year
  Sex: Female
  Weight: 92.9874 kg

DRUGS (41)
  1. AVONEX [Suspect]
     Indication: MULTIPLE SCLEROSIS
     Dates: start: 19960101
  2. AVONEX [Suspect]
     Indication: MULTIPLE SCLEROSIS
     Dosage: 30 MCG QW IM
     Route: 030
     Dates: start: 19981101
  3. NATALIZUMAB [Concomitant]
  4. PROVIGIL [Concomitant]
  5. CELEXA [Concomitant]
  6. NORVASC [Concomitant]
  7. BACLOFEN [Concomitant]
  8. NORTRIPTYLINE HCL [Concomitant]
  9. DOXEPIN HCL [Concomitant]
  10. PREVACID [Concomitant]
  11. SKELAXIN [Concomitant]
  12. SYMMETREL [Concomitant]
  13. COMBIVENT [Concomitant]
  14. FEMHRT [Concomitant]
  15. PRILOSEC [Concomitant]
  16. NEXIUM [Concomitant]
  17. ACETAMINOPHEN [Concomitant]
  18. TIAZAC [Concomitant]
  19. PLAVIX [Concomitant]
  20. AMITRIPTYLINE HCL [Concomitant]
  21. WELLBUTRIN [Concomitant]
  22. RYNATASA [Concomitant]
  23. SYPHEDRINE [Concomitant]
  24. CRISOPRODOL [Concomitant]
  25. TRILEPTAL [Concomitant]
  26. MIRALAX [Concomitant]
  27. BIAXIN XL [Concomitant]
  28. TUSSIZONG [Concomitant]
  29. MULTI-VITAMINS [Concomitant]
  30. VITAMIN E [Concomitant]
  31. CALCIUM CARBONATE [Concomitant]
  32. FISH OIL [Concomitant]
  33. IRON [Concomitant]
  34. AMOXIL [Concomitant]
  35. CELEBREX [Concomitant]
  36. TRAZODONE HCL [Concomitant]
  37. MARCAINE [Concomitant]
  38. LIDOCAINE [Concomitant]
  39. VERSED [Concomitant]
  40. FENTANYL [Concomitant]
  41. DARVOCET-N 100 [Concomitant]

REACTIONS (9)
  - ALANINE AMINOTRANSFERASE INCREASED [None]
  - ASPARTATE AMINOTRANSFERASE INCREASED [None]
  - BLOOD ALKALINE PHOSPHATASE INCREASED [None]
  - GAMMA-GLUTAMYLTRANSFERASE INCREASED [None]
  - HEPATIC STEATOSIS [None]
  - PROGRESSIVE MULTIPLE SCLEROSIS [None]
  - SERUM FERRITIN DECREASED [None]
  - WEIGHT DECREASED [None]
  - WEIGHT INCREASED [None]
